FAERS Safety Report 16736598 (Version 2)
Quarter: 2019Q4

REPORT INFORMATION
  Report Type: Spontaneous
  Country: US (occurrence: US)
  Receive Date: 20190823
  Receipt Date: 20191218
  Transmission Date: 20200122
  Serious: Yes (Other)
  Sender: FDA-Public Use
  Company Number: US-BIOCODEX SA-201900841

PATIENT

DRUGS (2)
  1. DIACOMIT [Suspect]
     Active Substance: STIRIPENTOL
     Dosage: 250 MG, QD
     Route: 048
  2. DIACOMIT [Suspect]
     Active Substance: STIRIPENTOL
     Indication: PRODUCT USED FOR UNKNOWN INDICATION
     Dosage: 500 MG, QD
     Route: 048
     Dates: start: 20190626

REACTIONS (2)
  - Seizure [Unknown]
  - Fatigue [Unknown]

NARRATIVE: CASE EVENT DATE: 20191112
